FAERS Safety Report 5593843-2 (Version None)
Quarter: 2007Q4

REPORT INFORMATION
  Report Type: 
  Country: None (occurrence: None)
  Receive Date: 20071218
  Receipt Date: 20061204
  Transmission Date: 20080405
  Serious: Yes (Hospitalization, Other)
  Sender: FDA-Public Use
  Company Number: 2006151394

PATIENT
  Sex: Female

DRUGS (2)
  1. BEXTRA [Suspect]
     Dates: start: 20031001
  2. VIOXX [Suspect]
     Dosage: ORAL
     Route: 048
     Dates: start: 20030501

REACTIONS (2)
  - MYOCARDIAL INFARCTION [None]
  - PULMONARY EMBOLISM [None]
